FAERS Safety Report 17685073 (Version 1)
Quarter: 2020Q2

REPORT INFORMATION
  Report Type: Report from Study
  Country: US (occurrence: US)
  Receive Date: 20200420
  Receipt Date: 20200420
  Transmission Date: 20200714
  Serious: Yes (Hospitalization)
  Sender: FDA-Public Use
  Company Number: US-ROCHE-2582094

PATIENT
  Age: 71 Year
  Sex: Female

DRUGS (2)
  1. OCREVUS [Suspect]
     Active Substance: OCRELIZUMAB
     Indication: RELAPSING MULTIPLE SCLEROSIS
     Dosage: INITIAL DOSE-300 MG ON DAY 1 AND NEXT ON DAY 15?NEXT SUBSEQUENT DATES 22/APR/2019,18/NOV/2019,16/NOV
     Route: 065
     Dates: start: 20171016
  2. OCREVUS [Suspect]
     Active Substance: OCRELIZUMAB
     Dosage: TWO 300 MG
     Route: 065

REACTIONS (1)
  - Pneumonia [Recovered/Resolved]

NARRATIVE: CASE EVENT DATE: 201909
